FAERS Safety Report 8348866-7 (Version None)
Quarter: 2012Q2

REPORT INFORMATION
  Report Type: 
  Country: None (occurrence: None)
  Receive Date: 20120510
  Receipt Date: 20120504
  Transmission Date: 20120825
  Serious: Yes (Hospitalization)
  Sender: FDA-Public Use
  Company Number: US-ASTRAZENECA-2011SE41525

PATIENT
  Age: 51 Year
  Sex: Female

DRUGS (13)
  1. GABAPENTIN [Concomitant]
  2. ATACAND HCT [Concomitant]
     Dosage: 32/12.5MG
  3. NEXIUM [Suspect]
     Indication: GASTROOESOPHAGEAL REFLUX DISEASE
     Route: 048
     Dates: start: 20060101
  4. PLAVIX [Concomitant]
  5. BENICAR HCT [Concomitant]
     Dosage: 40/12.5MG
  6. PROVERA [Concomitant]
     Indication: HAEMOSTASIS
  7. SINGULAIR [Concomitant]
  8. NEXIUM [Suspect]
     Route: 048
     Dates: start: 20050101, end: 20120101
  9. CALCIUM [Concomitant]
     Indication: OSTEOPOROSIS
     Dates: start: 20050101
  10. ISOSORBIDE DINITRATE [Concomitant]
  11. TRAMADOL HYDROCHLORIDE [Concomitant]
  12. FERROUS SULFATE TAB [Concomitant]
     Indication: ANAEMIA
  13. SPIRONOLACT [Concomitant]

REACTIONS (5)
  - ANKLE FRACTURE [None]
  - UPPER LIMB FRACTURE [None]
  - SCAR [None]
  - LOWER LIMB FRACTURE [None]
  - EMOTIONAL DISTRESS [None]
